FAERS Safety Report 7582524-1 (Version None)
Quarter: 2011Q2

REPORT INFORMATION
  Report Type: 
  Country: None (occurrence: None)
  Receive Date: 20110630
  Receipt Date: 20110627
  Transmission Date: 20111010
  Serious: No
  Sender: FDA-Public Use
  Company Number: US-PFIZER INC-2011143545

PATIENT
  Sex: Female

DRUGS (3)
  1. NEURONTIN [Suspect]
     Dosage: 100 MG
     Route: 048
  2. NEURONTIN [Suspect]
     Dosage: 300 MG
     Route: 048
  3. NEURONTIN [Suspect]
     Dosage: UNK
     Route: 048

REACTIONS (3)
  - DRUG INEFFECTIVE [None]
  - DIZZINESS [None]
  - BLOOD PRESSURE INCREASED [None]
